FAERS Safety Report 6173689-7 (Version None)
Quarter: 2009Q2

REPORT INFORMATION
  Report Type: 
  Country: None (occurrence: None)
  Receive Date: 20090429
  Receipt Date: 20090429
  Transmission Date: 20091009
  Serious: Yes (Other)
  Sender: FDA-Public Use
  Company Number: None

PATIENT
  Age: 55 Year
  Sex: Female
  Weight: 68.0396 kg

DRUGS (2)
  1. DIGOXIN [Suspect]
     Dosage: 0.125MG BID PO RX FILLED 1/90 AT WALMART
     Route: 048
  2. POTASSIUM CHLORIDE [Concomitant]

REACTIONS (7)
  - DIARRHOEA [None]
  - DIZZINESS [None]
  - GAIT DISTURBANCE [None]
  - NAUSEA [None]
  - PRODUCT QUALITY ISSUE [None]
  - THERAPEUTIC AGENT TOXICITY [None]
  - VOMITING [None]
